FAERS Safety Report 8787689 (Version 1)
Quarter: 2012Q4

REPORT INFORMATION
  Report Type: 
  Country: DE (occurrence: DE)
  Receive Date: 20120914
  Receipt Date: 20120914
  Transmission Date: 20130627
  Serious: Yes (Other)
  Sender: FDA-Public Use
  Company Number: DE-ROCHE-1123379

PATIENT

DRUGS (1)
  1. MIRCERA [Suspect]
     Indication: NEPHROGENIC ANAEMIA
     Route: 065

REACTIONS (9)
  - Transaminases increased [Unknown]
  - Haemoglobin decreased [Unknown]
  - Squamous cell carcinoma of lung [Unknown]
  - Hot flush [Unknown]
  - Nausea [Unknown]
  - Vomiting [Unknown]
  - Arteriovenous fistula thrombosis [Unknown]
  - Hyperhidrosis [Unknown]
  - Vena cava thrombosis [Unknown]
